FAERS Safety Report 21807395 (Version 1)
Quarter: 2023Q1

REPORT INFORMATION
  Report Type: Spontaneous
  Country: SK (occurrence: SK)
  Receive Date: 20230102
  Receipt Date: 20230102
  Transmission Date: 20230418
  Serious: Yes (Death, Hospitalization)
  Sender: FDA-Public Use
  Company Number: SK-STRIDES ARCOLAB LIMITED-2022SP017730

PATIENT
  Age: 59 Year
  Sex: Female

DRUGS (7)
  1. PREDNISOLONE [Suspect]
     Active Substance: PREDNISOLONE
     Indication: Myocarditis
     Dosage: 1 MILLIGRAM/KILOGRAM, UNKNOWN
     Route: 065
  2. MYCOPHENOLATE MOFETIL [Suspect]
     Active Substance: MYCOPHENOLATE MOFETIL
     Indication: Myocarditis
     Dosage: 1000 MILLIGRAM, BID
     Route: 065
  3. METHYLPREDNISOLONE [Suspect]
     Active Substance: METHYLPREDNISOLONE
     Indication: Myocarditis
     Dosage: 1 MILLIGRAM/KILOGRAM PER DAY
     Route: 042
  4. CISPLATIN [Concomitant]
     Active Substance: CISPLATIN
     Indication: Thymic carcinoma
     Dosage: 75 MILLIGRAM/SQ. METER, 2 CYCLES
     Route: 065
     Dates: start: 201907
  5. GEMCITABINE [Concomitant]
     Active Substance: GEMCITABINE
     Indication: Thymic carcinoma
     Dosage: 1000 MILLIGRAM/SQ. METER, 2 CYCLES
     Route: 065
     Dates: start: 201907
  6. NIVOLUMAB [Concomitant]
     Active Substance: NIVOLUMAB
     Indication: Thymic carcinoma
     Dosage: 240 MILLIGRAM PER 0.5 WEEK
     Route: 065
     Dates: start: 201911
  7. AMIODARONE [Concomitant]
     Active Substance: AMIODARONE
     Indication: Ventricular tachycardia
     Dosage: UNK
     Route: 065

REACTIONS (2)
  - Drug ineffective [Fatal]
  - Off label use [Unknown]
